FAERS Safety Report 13447839 (Version 1)
Quarter: 2017Q2

REPORT INFORMATION
  Report Type: Spontaneous
  Country: None (occurrence: US)
  Receive Date: 20170415
  Receipt Date: 20170415
  Transmission Date: 20170830
  Serious: Yes (Death, Hospitalization)
  Sender: FDA-Public Use
  Company Number: None

PATIENT
  Age: 71 Year
  Sex: Male
  Weight: 74.4 kg

DRUGS (1)
  1. INTRON A [Suspect]
     Active Substance: INTERFERON ALFA-2B
     Dates: end: 20170317

REACTIONS (7)
  - Pain in extremity [None]
  - Respiratory failure [None]
  - Anaemia of malignant disease [None]
  - Encephalopathy [None]
  - Pelvic mass [None]
  - Deep vein thrombosis [None]
  - Pneumonia aspiration [None]

NARRATIVE: CASE EVENT DATE: 20170327
